FAERS Safety Report 13290644 (Version 4)
Quarter: 2018Q2

REPORT INFORMATION
  Report Type: Spontaneous
  Country: ES (occurrence: ES)
  Receive Date: 20170302
  Receipt Date: 20180420
  Transmission Date: 20180711
  Serious: Yes (Death, Other)
  Sender: FDA-Public Use
  Company Number: ES-PFIZER INC-2017088757

PATIENT
  Age: 26 Year
  Sex: Female

DRUGS (3)
  1. TRANKIMAZIN [Suspect]
     Active Substance: ALPRAZOLAM
     Dosage: UNK
     Route: 048
  2. TRANKIMAZIN [Suspect]
     Active Substance: ALPRAZOLAM
     Dosage: UNK
     Route: 048
  3. TRANKIMAZIN [Suspect]
     Active Substance: ALPRAZOLAM
     Dosage: UNK
     Route: 048

REACTIONS (3)
  - Prescription drug used without a prescription [Unknown]
  - Overdose [Fatal]
  - Dependence [Unknown]

NARRATIVE: CASE EVENT DATE: 201702
